FAERS Safety Report 19612578 (Version 1)
Quarter: 2021Q3

REPORT INFORMATION
  Report Type: Spontaneous
  Country: DE (occurrence: DE)
  Receive Date: 20210727
  Receipt Date: 20210727
  Transmission Date: 20211014
  Serious: Yes (Hospitalization, Other)
  Sender: FDA-Public Use
  Company Number: DE-SUN PHARMACEUTICAL INDUSTRIES LTD-2021RR-305718

PATIENT
  Age: 39 Year
  Sex: Female

DRUGS (5)
  1. OXYCODON [Suspect]
     Active Substance: OXYCODONE
     Indication: PRODUCT USED FOR UNKNOWN INDICATION
     Dosage: 30 MILLIGRAM, DAILY, RECENTLY
     Route: 065
     Dates: end: 20210115
  2. PREGABALIN. [Concomitant]
     Active Substance: PREGABALIN
     Indication: PRODUCT USED FOR UNKNOWN INDICATION
     Dosage: 900 MILLIGRAM, DAILY
     Route: 065
     Dates: start: 2017
  3. SERTRALINE [Suspect]
     Active Substance: SERTRALINE HYDROCHLORIDE
     Indication: PRODUCT USED FOR UNKNOWN INDICATION
     Dosage: 50 MILLIGRAM, DAILY
     Route: 065
     Dates: start: 2019
  4. TAPENTADOL RETARD [Suspect]
     Active Substance: TAPENTADOL
     Indication: PRODUCT USED FOR UNKNOWN INDICATION
     Dosage: DAILY DOSE BETWEEN 100 AND 200MG; 100MG IF THE ADR OCCURS
     Route: 065
     Dates: start: 20210116, end: 20210207
  5. OXYCODON [Suspect]
     Active Substance: OXYCODONE
     Dosage: 15 MILLIGRAM, DAILY, FOR 1.5 YEARS
     Route: 065

REACTIONS (8)
  - Disorientation [Recovered/Resolved]
  - Amnestic disorder [Recovered/Resolved]
  - Muscle twitching [Not Recovered/Not Resolved]
  - Gaze palsy [Recovered/Resolved]
  - Muscle spasms [Recovered/Resolved]
  - Seizure [Recovered/Resolved]
  - Vision blurred [Recovered/Resolved]
  - Myoclonic epilepsy [Recovered/Resolved]

NARRATIVE: CASE EVENT DATE: 202101
